FAERS Safety Report 23591223 (Version 2)
Quarter: 2024Q1

REPORT INFORMATION
  Report Type: Report from Study
  Country: US (occurrence: US)
  Receive Date: 20240304
  Receipt Date: 20240312
  Transmission Date: 20240410
  Serious: No
  Sender: FDA-Public Use
  Company Number: US-TEVA-VS-3156977

PATIENT
  Sex: Female

DRUGS (1)
  1. COPAXONE [Suspect]
     Active Substance: GLATIRAMER ACETATE
     Indication: Multiple sclerosis
     Dosage: STARTED 10 - 15 YEARS AGO
     Route: 065

REACTIONS (2)
  - Product dose omission issue [Unknown]
  - Fine motor skill dysfunction [Not Recovered/Not Resolved]
